FAERS Safety Report 4727443-0 (Version None)
Quarter: 2005Q3

REPORT INFORMATION
  Report Type: 
  Country: None (occurrence: None)
  Receive Date: 20050725
  Receipt Date: 20050725
  Transmission Date: 20060218
  Serious: Yes (Hospitalization)
  Sender: FDA-Public Use
  Company Number: None

PATIENT
  Age: 75 Year
  Sex: Male
  Weight: 59.4212 kg

DRUGS (10)
  1. BUPIVACAINE [Suspect]
     Indication: EPIDURAL ANAESTHESIA
     Dosage: 120ML-0.5% -  ONCE   INTRAVENOU
     Route: 042
     Dates: start: 20050517, end: 20050517
  2. FENTANYL [Suspect]
     Indication: EPIDURAL ANAESTHESIA
     Dosage: 4000MCG   ONCE   INTRAVENOU
     Route: 042
     Dates: start: 20050517, end: 20050517
  3. ALBUTEROL [Concomitant]
  4. IPRATROPIUM BR [Concomitant]
  5. METOPROLOL [Concomitant]
  6. PHENOL SPRAY [Concomitant]
  7. POTASSIUM CHLORIDE [Concomitant]
  8. TRAVOPROST [Concomitant]
  9. OMEPRAZOLE [Concomitant]
  10. SIMVASTATIN [Concomitant]

REACTIONS (6)
  - BLOOD CREATININE INCREASED [None]
  - CONFUSIONAL STATE [None]
  - DRUG EFFECT INCREASED [None]
  - HALLUCINATION [None]
  - INCORRECT DOSE ADMINISTERED [None]
  - NIGHTMARE [None]
